FAERS Safety Report 9708633 (Version 1)
Quarter: 2013Q4

REPORT INFORMATION
  Report Type: Spontaneous
  Country: US (occurrence: None)
  Receive Date: 20131121
  Receipt Date: 20131121
  Transmission Date: 20140711
  Serious: Yes (Death, Other)
  Sender: FDA-Public Use
  Company Number: 201311034

PATIENT
  Sex: Male

DRUGS (1)
  1. TESTOSTERONE [Suspect]
     Dosage: 5 GM, TRANSDERMAL
     Route: 062
     Dates: start: 2005, end: 2011

REACTIONS (2)
  - Myocardial infarction [None]
  - Ischaemic stroke [None]
